FAERS Safety Report 15888180 (Version 1)
Quarter: 2019Q1

REPORT INFORMATION
  Report Type: Spontaneous
  Country: US (occurrence: US)
  Receive Date: 20190108
  Receipt Date: 20190108
  Transmission Date: 20190417
  Serious: Yes (Other)
  Sender: FDA-Public Use
  Company Number: None

PATIENT
  Age: 80 Year
  Sex: Female
  Weight: 49.44 kg

DRUGS (5)
  1. IRON [Concomitant]
     Active Substance: IRON
  2. VIT B [Concomitant]
     Active Substance: VITAMIN B
  3. VALSARTAN. [Suspect]
     Active Substance: VALSARTAN
     Indication: HYPERTENSION
     Dosage: ?          QUANTITY:1 PILL;?
     Route: 048
     Dates: start: 20170301, end: 20181205
  4. TYLNOL MIGRAINE [Concomitant]
  5. VITAMIN C [Concomitant]
     Active Substance: ASCORBIC ACID

REACTIONS (2)
  - Pain in extremity [None]
  - Movement disorder [None]

NARRATIVE: CASE EVENT DATE: 20170810
